FAERS Safety Report 5734068-7 (Version None)
Quarter: 2008Q2

REPORT INFORMATION
  Report Type: 
  Country: None (occurrence: None)
  Receive Date: 20080509
  Receipt Date: 20080429
  Transmission Date: 20081010
  Serious: Yes (Other)
  Sender: FDA-Public Use
  Company Number: DE-PFIZER INC-2008038385

PATIENT
  Sex: Male

DRUGS (2)
  1. LYRICA [Suspect]
     Indication: POST HERPETIC NEURALGIA
     Route: 048
  2. AMITRIPTLINE HCL [Suspect]

REACTIONS (1)
  - HEPATITIS [None]
